FAERS Safety Report 21924232 (Version 1)
Quarter: 2023Q1

REPORT INFORMATION
  Report Type: Report from Study
  Country: US (occurrence: US)
  Receive Date: 20230130
  Receipt Date: 20230130
  Transmission Date: 20230417
  Serious: Yes (Hospitalization)
  Sender: FDA-Public Use
  Company Number: US-ABBVIE-4286034

PATIENT
  Age: 84 Year
  Sex: Male
  Weight: 108.86 kg

DRUGS (2)
  1. CREON [Suspect]
     Active Substance: PANCRELIPASE AMYLASE\PANCRELIPASE LIPASE\PANCRELIPASE PROTEASE
     Indication: Pancreatic failure
     Dosage: 2CAPSULE EACH MEAL 1 CAPSULE SNACK
     Route: 048
     Dates: start: 202203
  2. MOLNUPIRAVIR [Concomitant]
     Active Substance: MOLNUPIRAVIR
     Indication: SARS-CoV-2 test positive

REACTIONS (3)
  - SARS-CoV-2 test positive [Recovering/Resolving]
  - Laboratory test abnormal [Recovered/Resolved]
  - Heart rate decreased [Recovered/Resolved]

NARRATIVE: CASE EVENT DATE: 20230118
